FAERS Safety Report 5430449-X (Version None)
Quarter: 2007Q3

REPORT INFORMATION
  Report Type: 
  Country: None (occurrence: None)
  Receive Date: 20070830
  Receipt Date: 20070821
  Transmission Date: 20080115
  Serious: Yes (Other)
  Sender: FDA-Public Use
  Company Number: US-JNJFOC-20070804377

PATIENT
  Sex: Male
  Weight: 82.56 kg

DRUGS (3)
  1. REMICADE [Suspect]
  2. REMICADE [Suspect]
     Indication: CROHN'S DISEASE
  3. 6-MP [Concomitant]

REACTIONS (3)
  - DRUG INEFFECTIVE [None]
  - INTESTINAL RESECTION [None]
  - PSORIASIS [None]
